FAERS Safety Report 21382386 (Version 1)
Quarter: 2022Q3

REPORT INFORMATION
  Report Type: Spontaneous
  Country: US (occurrence: None)
  Receive Date: 20220927
  Receipt Date: 20220927
  Transmission Date: 20221027
  Serious: Yes (Other)
  Sender: FDA-Public Use
  Company Number: US-ROCHE-3174529

PATIENT
  Age: 50 Year
  Sex: Female
  Weight: 158.35 kg

DRUGS (2)
  1. ACTEMRA [Suspect]
     Active Substance: TOCILIZUMAB
     Indication: Rheumatoid arthritis
     Dosage: STRENGTH:162MG/0.9 ML
     Route: 058
     Dates: start: 20220729, end: 20220831
  2. ACTEMRA [Suspect]
     Active Substance: TOCILIZUMAB

REACTIONS (8)
  - Rash [Unknown]
  - Pruritus [Unknown]
  - Urticaria [Unknown]
  - Chest discomfort [Unknown]
  - Blister [Unknown]
  - Diabetes mellitus [Unknown]
  - Blood glucose increased [Unknown]
  - Hypersensitivity [Unknown]

NARRATIVE: CASE EVENT DATE: 20220831
